FAERS Safety Report 7141760-9 (Version None)
Quarter: 2010Q4

REPORT INFORMATION
  Report Type: 
  Country: None (occurrence: None)
  Receive Date: 20101202
  Receipt Date: 20101202
  Transmission Date: 20110411
  Serious: No
  Sender: FDA-Public Use
  Company Number: None

PATIENT
  Age: 58 Year
  Sex: Female
  Weight: 57.6068 kg

DRUGS (2)
  1. OXYCONTIN [Suspect]
     Indication: NERVE INJURY
     Dosage: 60 MG 2X A DAY
     Dates: start: 20050101
  2. OXYCONTIN [Suspect]
     Indication: PAIN
     Dosage: 60 MG 2X A DAY
     Dates: start: 20050101

REACTIONS (7)
  - ALOPECIA [None]
  - DEPRESSION [None]
  - DRUG EFFECT DECREASED [None]
  - MALAISE [None]
  - NAUSEA [None]
  - PAIN [None]
  - PRODUCT SUBSTITUTION ISSUE [None]
